FAERS Safety Report 13695910 (Version 1)
Quarter: 2017Q2

REPORT INFORMATION
  Report Type: Spontaneous
  Country: US (occurrence: US)
  Receive Date: 20170628
  Receipt Date: 20170628
  Transmission Date: 20170830
  Serious: No
  Sender: FDA-Public Use
  Company Number: US-ACCORD-052380

PATIENT
  Age: 66 Year
  Sex: Male
  Weight: 88.45 kg

DRUGS (1)
  1. AMITRIPTYLINE [Suspect]
     Active Substance: AMITRIPTYLINE
     Indication: FATIGUE
     Dosage: BROWN TABLETS WITH ^I2^?STRENGTH: 25 MG
     Route: 048

REACTIONS (4)
  - Drug ineffective [Unknown]
  - Pain [Unknown]
  - Off label use [Unknown]
  - Functional gastrointestinal disorder [Unknown]
